FAERS Safety Report 6257580-3 (Version None)
Quarter: 2009Q3

REPORT INFORMATION
  Report Type: 
  Country: None (occurrence: None)
  Receive Date: 20090706
  Receipt Date: 20090630
  Transmission Date: 20100115
  Serious: Yes (Death)
  Sender: FDA-Public Use
  Company Number: KR-ASTRAZENECA-2009SE03793

PATIENT
  Age: 67 Year
  Sex: Male
  Weight: 66 kg

DRUGS (1)
  1. IRESSA [Suspect]
     Route: 048
     Dates: start: 20040627

REACTIONS (1)
  - DEATH [None]
